FAERS Safety Report 25611571 (Version 1)
Quarter: 2025Q3

REPORT INFORMATION
  Report Type: Spontaneous
  Country: US (occurrence: US)
  Receive Date: 20250728
  Receipt Date: 20250728
  Transmission Date: 20251020
  Serious: Yes (Other)
  Sender: UCB
  Company Number: US-UCBSA-2025045167

PATIENT

DRUGS (1)
  1. KEPPRA [Suspect]
     Active Substance: LEVETIRACETAM
     Indication: Product used for unknown indication
     Dosage: 750 MILLIGRAM, 2X/DAY (BID)

REACTIONS (6)
  - Generalised tonic-clonic seizure [Unknown]
  - Fatigue [Unknown]
  - Agitation [Unknown]
  - Anger [Unknown]
  - Nausea [Unknown]
  - Drug ineffective [Unknown]
